FAERS Safety Report 10227256 (Version 1)
Quarter: 2014Q2

REPORT INFORMATION
  Report Type: Spontaneous
  Country: US (occurrence: US)
  Receive Date: 20140610
  Receipt Date: 20140610
  Transmission Date: 20141212
  Serious: No
  Sender: FDA-Public Use
  Company Number: US-JNJFOC-20140517287

PATIENT
  Age: 49 Year
  Sex: Female
  Weight: 77.57 kg

DRUGS (3)
  1. DURAGESIC [Suspect]
     Indication: PAIN
     Route: 062
     Dates: start: 20140517
  2. CYMBALTA [Concomitant]
     Indication: PAIN
     Route: 048
     Dates: start: 201008
  3. ATIVAN [Concomitant]
     Indication: PAIN
     Dosage: 1 MG IN THE MORNING AND 0.5 MG IN THE EVENING
     Route: 048
     Dates: start: 201008

REACTIONS (8)
  - Product adhesion issue [Unknown]
  - Product quality issue [Unknown]
  - Product quality issue [Unknown]
  - Poor quality drug administered [Unknown]
  - Pain [Not Recovered/Not Resolved]
  - Product quality issue [Unknown]
  - Wrong technique in drug usage process [Unknown]
  - Product quality issue [Unknown]
